FAERS Safety Report 25548412 (Version 1)
Quarter: 2025Q3

REPORT INFORMATION
  Report Type: Spontaneous
  Country: SG (occurrence: SG)
  Receive Date: 20250714
  Receipt Date: 20250714
  Transmission Date: 20251020
  Serious: Yes (Other)
  Sender: Steriscience PTE
  Company Number: SG-STERISCIENCE B.V.-2025-ST-001311

PATIENT
  Sex: Male

DRUGS (3)
  1. VANCOMYCIN [Suspect]
     Active Substance: VANCOMYCIN
     Indication: Pyelonephritis
     Route: 042
  2. AZACTAM [Suspect]
     Active Substance: AZTREONAM
     Indication: Antibiotic therapy
     Route: 042
  3. AZACTAM [Suspect]
     Active Substance: AZTREONAM
     Indication: Pyelonephritis

REACTIONS (1)
  - Drug-induced liver injury [None]
